FAERS Safety Report 24720999 (Version 1)
Quarter: 2024Q4

REPORT INFORMATION
  Report Type: Spontaneous
  Country: JP (occurrence: JP)
  Receive Date: 20241211
  Receipt Date: 20241211
  Transmission Date: 20250115
  Serious: Yes (Hospitalization)
  Sender: AMGEN
  Company Number: JP-AMGEN-JPNSP2024239863

PATIENT
  Age: 81 Year
  Sex: Male

DRUGS (5)
  1. PEGFILGRASTIM [Suspect]
     Active Substance: PEGFILGRASTIM
     Indication: Small cell lung cancer
     Dosage: UNK
     Route: 065
  2. AMRUBICIN [Concomitant]
     Active Substance: AMRUBICIN
     Indication: Prophylaxis
  3. FLUTICASONE FUROATE [Concomitant]
     Active Substance: FLUTICASONE FUROATE
     Indication: Chronic obstructive pulmonary disease
  4. UMECLIDINIUM BROMIDE [Concomitant]
     Active Substance: UMECLIDINIUM BROMIDE
     Indication: Chronic obstructive pulmonary disease
  5. VILANTEROL TRIFENATATE [Concomitant]
     Active Substance: VILANTEROL TRIFENATATE
     Indication: Chronic obstructive pulmonary disease

REACTIONS (3)
  - Oropharyngeal candidiasis [Recovering/Resolving]
  - Epiglottitis [Recovering/Resolving]
  - Febrile neutropenia [Recovering/Resolving]
